FAERS Safety Report 6545765-8 (Version None)
Quarter: 2010Q1

REPORT INFORMATION
  Report Type: 
  Country: None (occurrence: None)
  Receive Date: 20100119
  Receipt Date: 20100112
  Transmission Date: 20100710
  Serious: No
  Sender: FDA-Public Use
  Company Number: 20097762

PATIENT
  Age: 19 Year
  Sex: Male

DRUGS (1)
  1. LIORESAL [Suspect]
     Indication: MUSCLE SPASTICITY
     Dosage: 100, DAILY, INTRATHECAL
     Route: 037

REACTIONS (4)
  - INCISION SITE COMPLICATION [None]
  - INFECTION [None]
  - OPEN WOUND [None]
  - SCRATCH [None]
